FAERS Safety Report 23893114 (Version 1)
Quarter: 2024Q2

REPORT INFORMATION
  Report Type: Report from Study
  Country: BR (occurrence: BR)
  Receive Date: 20240524
  Receipt Date: 20240524
  Transmission Date: 20240716
  Serious: Yes (Other)
  Sender: FDA-Public Use
  Company Number: BR-CELLTRION INC.-2024BR011781

PATIENT

DRUGS (4)
  1. INFLIXIMAB [Suspect]
     Active Substance: INFLIXIMAB
     Indication: Crohn^s disease
     Dosage: 8 AMPOULES EVERY 8 WEEKS
     Route: 042
     Dates: start: 20240130
  2. INFLIXIMAB [Suspect]
     Active Substance: INFLIXIMAB
     Dosage: 8 AMPOULES EVERY 8 WEEKS
     Route: 042
     Dates: start: 202403
  3. MESALAMINE [Concomitant]
     Active Substance: MESALAMINE
     Indication: Crohn^s disease
     Dosage: 500 MG, 4 PILLS EVERY 12 HOURS (START DATE: 9 YEARS AGO)
     Route: 048
  4. AZATHIOPRINE [Concomitant]
     Active Substance: AZATHIOPRINE
     Indication: Crohn^s disease
     Dosage: 50 MG, 3 PILLS A DAY (START DATE: 2 YEARS AGO)
     Route: 048
     Dates: end: 202403

REACTIONS (8)
  - Crohn^s disease [Unknown]
  - Ill-defined disorder [Recovering/Resolving]
  - Skin ulcer [Recovered/Resolved]
  - Eye infection [Recovered/Resolved]
  - Hypersensitivity [Unknown]
  - Skin infection [Recovering/Resolving]
  - Drug ineffective [Unknown]
  - Intentional product use issue [Unknown]

NARRATIVE: CASE EVENT DATE: 20240201
